FAERS Safety Report 22256299 (Version 1)
Quarter: 2023Q2

REPORT INFORMATION
  Report Type: Spontaneous
  Country: US (occurrence: None)
  Receive Date: 20230425
  Receipt Date: 20230425
  Transmission Date: 20230722
  Serious: Yes (Death)
  Sender: FDA-Public Use
  Company Number: None

PATIENT
  Age: 64 Year
  Sex: Female
  Weight: 66.86 kg

DRUGS (15)
  1. CAPECITABINE [Suspect]
     Active Substance: CAPECITABINE
     Indication: Breast cancer female
     Dosage: FREQUENCY : TWICE A DAY;?
     Route: 048
     Dates: start: 20220306
  2. BIOPROLOL-HYDROCLOROTHIAZIDE [Concomitant]
  3. DULCOLAX NOS [Concomitant]
     Active Substance: BISACODYL OR DOCUSATE SODIUM
  4. ELIQUIS [Concomitant]
     Active Substance: APIXABAN
  5. HEPARIN [Concomitant]
     Active Substance: HEPARIN SODIUM
  6. LEVETIRACETAM [Concomitant]
     Active Substance: LEVETIRACETAM
  7. MEMANTINE [Concomitant]
     Active Substance: MEMANTINE
  8. PEPCID [Concomitant]
     Active Substance: FAMOTIDINE
  9. PREDNISONE [Concomitant]
     Active Substance: PREDNISONE
  10. SYNTHROID [Concomitant]
     Active Substance: LEVOTHYROXINE SODIUM
  11. TAMOXIFEN [Concomitant]
     Active Substance: TAMOXIFEN
  12. TRAZIMERA [Concomitant]
  13. TYLENOL [Concomitant]
  14. VALSARTAN [Concomitant]
     Active Substance: VALSARTAN
  15. ZOFRAN [Concomitant]
     Active Substance: ONDANSETRON HYDROCHLORIDE

REACTIONS (1)
  - Death [None]
